FAERS Safety Report 8289679-4 (Version None)
Quarter: 2012Q2

REPORT INFORMATION
  Report Type: 
  Country: None (occurrence: None)
  Receive Date: 20120417
  Receipt Date: 20120406
  Transmission Date: 20120825
  Serious: Yes (Hospitalization)
  Sender: FDA-Public Use
  Company Number: FR-PERRIGO-12FR002976

PATIENT
  Age: 57 Year
  Sex: Female

DRUGS (4)
  1. POLYETHYLENE GLYCOL [Suspect]
     Indication: CONSTIPATION
     Dosage: UNK, UNK
     Route: 048
  2. KETOPROFEN [Concomitant]
     Indication: MUSCULOSKELETAL PAIN
     Dosage: UNK, UNK
     Route: 065
  3. ESOMEPRAZOLE MAGNESIUM [Concomitant]
     Indication: MUSCULOSKELETAL PAIN
     Dosage: UNK
     Route: 065
  4. TRAMADOL HCL [Concomitant]
     Indication: MUSCULOSKELETAL PAIN
     Dosage: UNK
     Route: 065

REACTIONS (6)
  - ANAPHYLACTIC SHOCK [None]
  - HYPOTENSION [None]
  - ASTHENIA [None]
  - PRURITUS [None]
  - URTICARIA [None]
  - DIZZINESS [None]
